FAERS Safety Report 24787047 (Version 1)
Quarter: 2024Q4

REPORT INFORMATION
  Report Type: Spontaneous
  Country: TR (occurrence: TR)
  Receive Date: 20241230
  Receipt Date: 20241230
  Transmission Date: 20250114
  Serious: No
  Sender: ALKEM
  Company Number: TR-ALKEM LABORATORIES LIMITED-TR-ALKEM-2024-24013

PATIENT
  Age: 77 Year
  Sex: Female

DRUGS (3)
  1. CLOPIDOGREL [Suspect]
     Active Substance: CLOPIDOGREL BISULFATE
     Indication: Antiplatelet therapy
     Dosage: 75 MILLIGRAM
     Route: 048
  2. ASPIRIN [Concomitant]
     Active Substance: ASPIRIN
     Indication: Antiplatelet therapy
     Dosage: 100 MILLIGRAM
     Route: 065
  3. HEPARIN [Concomitant]
     Active Substance: HEPARIN SODIUM
     Indication: Product used for unknown indication
     Dosage: 75 UNITS/KILOGRAM
     Route: 065

REACTIONS (1)
  - Drug resistance [Unknown]
